FAERS Safety Report 12818784 (Version 1)
Quarter: 2016Q4

REPORT INFORMATION
  Report Type: Spontaneous
  Country: US (occurrence: US)
  Receive Date: 20161006
  Receipt Date: 20161006
  Transmission Date: 20170207
  Serious: Yes (Other)
  Sender: FDA-Public Use
  Company Number: None

PATIENT
  Age: 61 Year
  Sex: Male

DRUGS (1)
  1. PENNSAID [Suspect]
     Active Substance: DICLOFENAC SODIUM
     Route: 061
     Dates: start: 20160126, end: 20161004

REACTIONS (4)
  - Wound [None]
  - Sunburn [None]
  - Blister [None]
  - Staphylococcal infection [None]

NARRATIVE: CASE EVENT DATE: 20161004
